FAERS Safety Report 6828973-8 (Version None)
Quarter: 2010Q3

REPORT INFORMATION
  Report Type: 
  Country: None (occurrence: None)
  Receive Date: 20100709
  Receipt Date: 20070226
  Transmission Date: 20110219
  Serious: No
  Sender: FDA-Public Use
  Company Number: US-PFIZER INC-2007016087

PATIENT
  Sex: Male
  Weight: 90.26 kg

DRUGS (3)
  1. CHANTIX [Suspect]
     Indication: SMOKING CESSATION THERAPY
     Dates: start: 20070118
  2. GLUCOVANCE [Concomitant]
     Indication: DIABETES MELLITUS
  3. ANALGESICS [Concomitant]
     Indication: PAIN

REACTIONS (4)
  - ASTHENIA [None]
  - DECREASED APPETITE [None]
  - FATIGUE [None]
  - INSOMNIA [None]
